FAERS Safety Report 10171863 (Version 1)
Quarter: 2014Q2

REPORT INFORMATION
  Report Type: Spontaneous
  Country: US (occurrence: None)
  Receive Date: 20140512
  Receipt Date: 20140512
  Transmission Date: 20141212
  Serious: Yes (Death)
  Sender: FDA-Public Use
  Company Number: UTC-048330

PATIENT
  Age: 65 Year
  Sex: Female
  Weight: 61.23 kg

DRUGS (3)
  1. REMODULIN (1 MILLIGRAM/MILLILITERS, INJECTION FOR INFUSION) (TREPROSTINIL SODIUM) [Suspect]
     Indication: COR PULMONALE CHRONIC
     Dosage: 14.4  UG/KG (0.01 UG/KG, 1 IN 1 MIN
     Route: 041
     Dates: start: 20111012
  2. REVATIO [Concomitant]
  3. LETAIRIS [Concomitant]

REACTIONS (1)
  - Death [None]
